FAERS Safety Report 7026155-0 (Version None)
Quarter: 2010Q4

REPORT INFORMATION
  Report Type: 
  Country: None (occurrence: None)
  Receive Date: 20101004
  Receipt Date: 20100928
  Transmission Date: 20110411
  Serious: No
  Sender: FDA-Public Use
  Company Number: US-BIOGENIDEC-2010BI033716

PATIENT
  Sex: Male

DRUGS (2)
  1. AVONEX [Suspect]
     Indication: MULTIPLE SCLEROSIS
     Route: 030
     Dates: start: 20011019
  2. AVONEX [Suspect]
     Route: 030
     Dates: start: 20100818

REACTIONS (3)
  - DEPRESSION [None]
  - INJECTION SITE PAIN [None]
  - STRESS [None]
